FAERS Safety Report 16001876 (Version 3)
Quarter: 2023Q1

REPORT INFORMATION
  Report Type: Spontaneous
  Country: FR (occurrence: FR)
  Receive Date: 20190225
  Receipt Date: 20230306
  Transmission Date: 20230418
  Serious: Yes (Hospitalization)
  Sender: FDA-Public Use
  Company Number: None

PATIENT
  Age: 57 Year
  Sex: Female
  Weight: 56 kg

DRUGS (10)
  1. VALSARTAN [Suspect]
     Active Substance: VALSARTAN
     Indication: Intentional overdose
     Dosage: 150 MG, UNK
     Route: 048
     Dates: start: 20180903, end: 20180903
  2. FLUOXETINE [Suspect]
     Active Substance: FLUOXETINE HYDROCHLORIDE
     Indication: Intentional overdose
     Dosage: 280 MG, UNK
     Route: 048
     Dates: start: 20180903, end: 20180903
  3. ATENOLOL [Suspect]
     Active Substance: ATENOLOL
     Indication: Intentional overdose
     Dosage: 750 MG, UNK
     Route: 048
     Dates: start: 20180903, end: 20180903
  4. AMLODIPINE [Suspect]
     Active Substance: AMLODIPINE BESYLATE
     Indication: Intentional overdose
     Dosage: 170 MG
     Route: 048
     Dates: start: 20180903, end: 20180903
  5. DOXYLAMINE [Suspect]
     Active Substance: DOXYLAMINE
     Indication: Intentional overdose
     Dosage: UNK
     Route: 048
     Dates: start: 20180903, end: 20180903
  6. ACAMPROSATE CALCIUM [Suspect]
     Active Substance: ACAMPROSATE CALCIUM
     Indication: Intentional overdose
     Dosage: 2331 MG, UNK (GASTRO-RESISTANT FILM-COATED TABLET)
     Route: 048
  7. PREGABALIN [Suspect]
     Active Substance: PREGABALIN
     Indication: Intentional overdose
     Dosage: 375 MG
     Route: 065
     Dates: start: 20180903, end: 20180903
  8. THIAMINE HYDROCHLORIDE [Concomitant]
     Active Substance: THIAMINE HYDROCHLORIDE
     Indication: Product used for unknown indication
     Dosage: UNK
     Route: 065
  9. IMOVANE [Concomitant]
     Active Substance: ZOPICLONE
     Indication: Product used for unknown indication
     Dosage: UNK
     Route: 065
  10. NALTREXONE [Concomitant]
     Active Substance: NALTREXONE
     Indication: Product used for unknown indication
     Dosage: UNK
     Route: 065

REACTIONS (2)
  - Seizure [Recovered/Resolved]
  - Coma [Recovered/Resolved]

NARRATIVE: CASE EVENT DATE: 20180903
